FAERS Safety Report 19072044 (Version 1)
Quarter: 2021Q1

REPORT INFORMATION
  Report Type: Spontaneous
  Country: US (occurrence: US)
  Receive Date: 20210330
  Receipt Date: 20210330
  Transmission Date: 20210420
  Serious: Yes (Other)
  Sender: FDA-Public Use
  Company Number: US-BIO PRODUCTS LABORATORY LTD-2108580

PATIENT
  Age: 36 Year
  Sex: Female

DRUGS (4)
  1. HUMAN NORMAL IMMUNOGLOBULIN [Suspect]
     Active Substance: HUMAN IMMUNOGLOBULIN G
     Indication: TRANSPLANT DYSFUNCTION
     Route: 042
  2. MYFORTIC [Concomitant]
     Active Substance: MYCOPHENOLATE SODIUM
  3. RITUXIMAB. [Concomitant]
     Active Substance: RITUXIMAB
  4. HIGH DOSE INTRAVENOUS STEROIDS [Concomitant]
     Active Substance: UNSPECIFIED INGREDIENT

REACTIONS (4)
  - Drug ineffective for unapproved indication [Unknown]
  - Acute respiratory failure [Not Recovered/Not Resolved]
  - Off label use [Unknown]
  - Renal failure [Not Recovered/Not Resolved]
